FAERS Safety Report 5444525-9 (Version None)
Quarter: 2007Q3

REPORT INFORMATION
  Report Type: 
  Country: None (occurrence: None)
  Receive Date: 20070904
  Receipt Date: 20070904
  Transmission Date: 20080115
  Serious: Yes (Hospitalization, Other)
  Sender: FDA-Public Use
  Company Number: None

PATIENT
  Age: 59 Year
  Sex: Female
  Weight: 133.8 kg

DRUGS (11)
  1. IOHEXOL 300 MG1/ML AMERSHAM HEALTH [Suspect]
     Indication: COMPUTERISED TOMOGRAM
     Dosage: 150ML ONCE IV BOLUS
     Route: 040
     Dates: start: 20070127, end: 20070127
  2. DOCUSATE SODIUM [Concomitant]
  3. ENOXAPARIN SODIUM [Concomitant]
  4. OSCAL [Concomitant]
  5. NIFEDIPINE [Concomitant]
  6. LISINOPRIL [Concomitant]
  7. AMITRIPTYLINE HCL [Concomitant]
  8. FENTANYL [Concomitant]
  9. VITAMIN A [Concomitant]
  10. ASCORBIC ACID [Concomitant]
  11. PANTOPRAZOLE SODIUM [Concomitant]

REACTIONS (1)
  - NEPHROPATHY [None]
